FAERS Safety Report 23998740 (Version 2)
Quarter: 2024Q3

REPORT INFORMATION
  Report Type: Spontaneous
  Country: JP (occurrence: JP)
  Receive Date: 20240621
  Receipt Date: 20240701
  Transmission Date: 20241017
  Serious: Yes (Hospitalization)
  Sender: ACCORD
  Company Number: JP-MLMSERVICE-20240524-PI075730-00101-1

PATIENT
  Age: 71 Year
  Sex: Male
  Weight: 52.25 kg

DRUGS (5)
  1. CISPLATIN [Suspect]
     Active Substance: CISPLATIN
     Indication: Pleural mesothelioma
     Dosage: CYCLE 1: 115 MG
  2. PEMETREXED [Suspect]
     Active Substance: PEMETREXED
     Indication: Pleural mesothelioma
     Dosage: CYCLE 1: 770MG
  3. PEMETREXED [Suspect]
     Active Substance: PEMETREXED
     Indication: Chemotherapy
     Dosage: CYCLE 2: REDUCTION DOSE BY 25% (375 MG/M2) : 590 MG
  4. CISPLATIN [Suspect]
     Active Substance: CISPLATIN
     Indication: Pleural mesothelioma
     Dosage: CYCLE 2: REDUCTION DOSE BY 25% ( 56.25MG/M2) : 85MG
  5. CISPLATIN [Suspect]
     Active Substance: CISPLATIN
     Indication: Chemotherapy
     Dosage: CYCLE 1: 115 MG

REACTIONS (2)
  - Renal injury [Recovering/Resolving]
  - Tubulointerstitial nephritis [Recovering/Resolving]
